FAERS Safety Report 5843677-6 (Version None)
Quarter: 2008Q3

REPORT INFORMATION
  Report Type: 
  Country: None (occurrence: None)
  Receive Date: 20080812
  Receipt Date: 20080812
  Transmission Date: 20090109
  Serious: No
  Sender: FDA-Public Use
  Company Number: None

PATIENT
  Age: 67 Year
  Sex: Female
  Weight: 48.5349 kg

DRUGS (1)
  1. METOPROLOL TARTRATE 25MG CARACO [Suspect]
     Indication: PALPITATIONS
     Dosage: 25MG ONE PER DAY PO
     Route: 048
     Dates: start: 20071201, end: 20080731

REACTIONS (3)
  - HEADACHE [None]
  - NAUSEA [None]
  - PERIPHERAL COLDNESS [None]
